FAERS Safety Report 5262217-6 (Version None)
Quarter: 2007Q1

REPORT INFORMATION
  Report Type: 
  Country: None (occurrence: None)
  Receive Date: 20070311
  Receipt Date: 20070228
  Transmission Date: 20070707
  Serious: Yes (Hospitalization, Other)
  Sender: FDA-Public Use
  Company Number: 2006UW07032

PATIENT
  Age: 604 Month
  Sex: Male
  Weight: 109.1 kg

DRUGS (3)
  1. SEROQUEL [Suspect]
     Indication: ANXIETY
     Route: 048
     Dates: start: 20020823, end: 20060101
  2. BUSPAR [Concomitant]
     Dates: start: 20030101
  3. LAMICTAL [Concomitant]
     Dates: start: 20030101

REACTIONS (6)
  - BASEDOW'S DISEASE [None]
  - CHOLECYSTECTOMY [None]
  - DIABETES MELLITUS NON-INSULIN-DEPENDENT [None]
  - GALLBLADDER OPERATION [None]
  - PANCREATIC INSUFFICIENCY [None]
  - WEIGHT INCREASED [None]
